FAERS Safety Report 6995942-7 (Version None)
Quarter: 2010Q3

REPORT INFORMATION
  Report Type: 
  Country: None (occurrence: None)
  Receive Date: 20100918
  Receipt Date: 20081124
  Transmission Date: 20110219
  Serious: No
  Sender: FDA-Public Use
  Company Number: US-WYE-H06964208

PATIENT
  Sex: Male
  Weight: 95.34 kg

DRUGS (7)
  1. EFFEXOR XR [Suspect]
     Dosage: UNKNOWN
     Route: 048
     Dates: end: 20081120
  2. EFFEXOR XR [Suspect]
     Route: 048
     Dates: start: 20081123
  3. XANAX [Concomitant]
  4. LISINOPRIL [Concomitant]
  5. MAXZIDE [Concomitant]
  6. PRISTIQ [Suspect]
     Indication: DEPRESSION
     Route: 048
     Dates: start: 20081121, end: 20081122
  7. PROPRANOLOL [Concomitant]

REACTIONS (6)
  - ABNORMAL DREAMS [None]
  - CRYING [None]
  - DIZZINESS [None]
  - DRUG WITHDRAWAL SYNDROME [None]
  - FEELING ABNORMAL [None]
  - PARAESTHESIA [None]
